FAERS Safety Report 21336773 (Version 4)
Quarter: 2024Q1

REPORT INFORMATION
  Report Type: Report from Study
  Country: US (occurrence: US)
  Receive Date: 20220915
  Receipt Date: 20240131
  Transmission Date: 20240409
  Serious: Yes (Other)
  Sender: FDA-Public Use
  Company Number: US-TAKEDA-2022TUS034971

PATIENT
  Age: 27 Year
  Sex: Male
  Weight: 84 kg

DRUGS (8)
  1. VEDOLIZUMAB [Suspect]
     Active Substance: VEDOLIZUMAB
     Indication: Colitis ulcerative
     Dosage: 300 MILLIGRAM, SINGLE
     Route: 042
     Dates: start: 20220510
  2. INFLECTRA [Concomitant]
     Active Substance: INFLIXIMAB-DYYB
     Dosage: UNK
  3. OMEGA 3 [Concomitant]
     Active Substance: CAPSAICIN
     Dosage: UNK
  4. VITAMIN C [Concomitant]
     Active Substance: ASCORBIC ACID
     Dosage: UNK
  5. ASTAXANTHIN [Concomitant]
     Active Substance: ASTAXANTHIN
     Dosage: UNK
  6. LEVOMEFOLATE CALCIUM [Concomitant]
     Active Substance: LEVOMEFOLATE CALCIUM
     Dosage: 400 MICROGRAM
  7. L-arginine + L-citrulline [Concomitant]
     Dosage: UNK
  8. LIPOSOMALES VITAMIN D3 [Concomitant]
     Dosage: UNK

REACTIONS (15)
  - Colitis ulcerative [Not Recovered/Not Resolved]
  - Dizziness [Recovered/Resolved]
  - Nausea [Recovered/Resolved]
  - Vein collapse [Recovered/Resolved]
  - Fungal infection [Not Recovered/Not Resolved]
  - Hypotrichosis [Not Recovered/Not Resolved]
  - Alopecia [Not Recovered/Not Resolved]
  - Abdominal pain upper [Recovered/Resolved]
  - Seborrhoeic dermatitis [Not Recovered/Not Resolved]
  - Stress [Unknown]
  - Flatulence [Recovered/Resolved]
  - Folliculitis [Not Recovered/Not Resolved]
  - Acne [Unknown]
  - Fatigue [Recovered/Resolved]
  - Pruritus [Not Recovered/Not Resolved]

NARRATIVE: CASE EVENT DATE: 20220501
